FAERS Safety Report 20376844 (Version 2)
Quarter: 2022Q1

REPORT INFORMATION
  Report Type: Spontaneous
  Country: GB (occurrence: GB)
  Receive Date: 20220125
  Receipt Date: 20220215
  Transmission Date: 20220424
  Serious: Yes (Other)
  Sender: FDA-Public Use
  Company Number: GB-NOVARTISPH-NVSC2022GB015737

PATIENT
  Age: 80 Year
  Sex: Female

DRUGS (1)
  1. MYDRIACYL [Suspect]
     Active Substance: TROPICAMIDE
     Indication: Ophthalmological examination
     Dosage: UNK
     Route: 047

REACTIONS (3)
  - Delirium [Unknown]
  - Confusional state [Unknown]
  - Thirst [Unknown]
